FAERS Safety Report 5209986-9 (Version None)
Quarter: 2006Q4

REPORT INFORMATION
  Report Type: 
  Country: None (occurrence: None)
  Receive Date: 20061130
  Receipt Date: 20040323
  Transmission Date: 20070319
  Serious: No
  Sender: FDA-Public Use
  Company Number: 2004UW05705

PATIENT
  Sex: Female

DRUGS (1)
  1. ZOMIG [Suspect]

REACTIONS (1)
  - MYOCARDIAL INFARCTION [None]
